FAERS Safety Report 7223239-9 (Version None)
Quarter: 2011Q1

REPORT INFORMATION
  Report Type: 
  Country: None (occurrence: None)
  Receive Date: 20110112
  Receipt Date: 20100419
  Transmission Date: 20110831
  Serious: No
  Sender: FDA-Public Use
  Company Number: US-ALLERGAN-1004011US

PATIENT
  Age: 76 Year
  Sex: Female

DRUGS (3)
  1. XALATAN [Concomitant]
  2. RESTASIS [Suspect]
     Indication: PRODUCT USED FOR UNKNOWN INDICATION
  3. SYSTANE [Suspect]

REACTIONS (4)
  - BLOOD URIC ACID INCREASED [None]
  - HOT FLUSH [None]
  - FEELING COLD [None]
  - EYE IRRITATION [None]
